FAERS Safety Report 9472508 (Version 4)
Quarter: 2013Q4

REPORT INFORMATION
  Report Type: Report from Study
  Country: BR (occurrence: BR)
  Receive Date: 20130823
  Receipt Date: 20131111
  Transmission Date: 20140711
  Serious: Yes (Hospitalization, Other)
  Sender: FDA-Public Use
  Company Number: PHHO2013BR010917

PATIENT
  Age: 42 Year
  Sex: Male
  Weight: 76 kg

DRUGS (9)
  1. CERTICAN [Suspect]
     Indication: RENAL TRANSPLANT
     Dosage: 2.5 MG, BID
     Route: 048
     Dates: start: 20130513, end: 20130705
  2. MYFORTIC [Suspect]
     Indication: IMMUNOSUPPRESSION
     Dosage: 720 MG, BID
     Route: 048
     Dates: start: 20130427, end: 20130621
  3. MYFORTIC [Suspect]
     Dosage: 360 MG, Q6H
     Route: 048
  4. MYFORTIC [Suspect]
     Dosage: 720 MG, BID
     Route: 048
  5. TACROLIMUS [Suspect]
     Indication: IMMUNOSUPPRESSION
     Dosage: 10 MG, BID
     Route: 048
     Dates: start: 20130706, end: 20130813
  6. TACROLIMUS [Suspect]
     Dosage: 9 MG, BID
     Route: 048
     Dates: start: 20130828
  7. PREDNISONE [Suspect]
     Indication: IMMUNOSUPPRESSION
     Dosage: 20 MG, QD
     Route: 048
     Dates: start: 20130502, end: 20130713
  8. PREDNISONE [Suspect]
     Dosage: 15 MG, QD
     Route: 048
     Dates: start: 20130828
  9. PREDNISONE [Suspect]
     Dosage: 10 MG, QD
     Route: 048

REACTIONS (6)
  - Fungal infection [Unknown]
  - Kidney transplant rejection [Recovered/Resolved]
  - Cytomegalovirus infection [Recovered/Resolved]
  - Wound infection [Recovered/Resolved]
  - Lymphocele [Recovered/Resolved]
  - Deep vein thrombosis [Unknown]
